FAERS Safety Report 5509064-5 (Version None)
Quarter: 2007Q4

REPORT INFORMATION
  Report Type: 
  Country: None (occurrence: None)
  Receive Date: 20071107
  Receipt Date: 20071024
  Transmission Date: 20080405
  Serious: Yes (Other)
  Sender: FDA-Public Use
  Company Number: GB-RANBAXY-2007RR-11017

PATIENT

DRUGS (1)
  1. TAMSULOSIN HCL [Suspect]

REACTIONS (2)
  - CARDIAC FAILURE [None]
  - TACHYCARDIA [None]
